FAERS Safety Report 18325609 (Version 1)
Quarter: 2020Q3

REPORT INFORMATION
  Report Type: Spontaneous
  Country: NL (occurrence: NL)
  Receive Date: 20200929
  Receipt Date: 20200929
  Transmission Date: 20201103
  Serious: Yes (Other)
  Sender: FDA-Public Use
  Company Number: NL-TEVA-555736ISR

PATIENT
  Age: 42 Year
  Sex: Female

DRUGS (9)
  1. UNSPECIFIED ORAL CONTRACEPTIVES [Concomitant]
     Active Substance: UNSPECIFIED INGREDIENT
     Dosage: 1 DOSAGE FORMS
     Route: 048
  2. DIAZEPAM TABLET 10MG / BRAND NAME NOT SPECIFIED [Concomitant]
     Active Substance: DIAZEPAM
     Dosage: 10 MG ,1DD1 IF NECESSARY
     Route: 048
  3. LORMETAZEPAM TABLET 1MG / BRAND NAME NOT SPECIFIED [Concomitant]
     Active Substance: LORMETAZEPAM
     Dosage: 1 MG ,1DD1 IF NECESSARY ,
     Route: 048
  4. ARIPIPRAZOL SMELTTABLET 10MG ? NON?CURRENT DRUG / BRAND NAME NOT SPECI [Suspect]
     Active Substance: ARIPIPRAZOLE
     Dosage: 25 MILLIGRAM DAILY;
     Route: 048
  5. PIPAMPERON TABLET 40MG / BRAND NAME NOT SPECIFIED [Concomitant]
     Active Substance: PIPAMPERONE
     Dosage: 40 MILLIGRAM DAILY; ?1DD1 IF NECESSARY
     Route: 048
  6. OMEPRAZOL CAPSULE MGA 20MG ? NON?CURRENT DRUG / BRAND NAME NOT SPECIFI [Concomitant]
     Dosage: 20 MG  IF NECESSARY
     Route: 050
  7. FLUOXETINE [Concomitant]
     Active Substance: FLUOXETINE HYDROCHLORIDE
     Dosage: 40 MG ,1DD2,THERAPY START DATE :ASKU,THERAPY END DATE :ASKU
     Route: 048
  8. PROMETHAZINE [Concomitant]
     Active Substance: PROMETHAZINE HYDROCHLORIDE
     Dosage: 50 MG ,1DD2
     Route: 048
  9. MULTIVITAMINEN [Concomitant]
     Dosage: 1 DOSAGE FORMS ,DOSAGE NOT KNOWN
     Route: 048

REACTIONS (1)
  - Pulmonary embolism [Unknown]

NARRATIVE: CASE EVENT DATE: 201411
